FAERS Safety Report 19462978 (Version 1)
Quarter: 2021Q2

REPORT INFORMATION
  Report Type: Report from Study
  Country: CA (occurrence: CA)
  Receive Date: 20210625
  Receipt Date: 20210625
  Transmission Date: 20210717
  Serious: Yes (Death, Other)
  Sender: FDA-Public Use
  Company Number: CA-TAKEDA-2021TUS039896

PATIENT
  Age: 73 Year
  Sex: Male

DRUGS (1)
  1. CUVITRU [Suspect]
     Active Substance: HUMAN IMMUNOGLOBULIN G
     Indication: PRODUCT USED FOR UNKNOWN INDICATION
     Dosage: 10 GRAM, 1/WEEK
     Route: 065
     Dates: start: 20191105

REACTIONS (1)
  - Death [Fatal]
